FAERS Safety Report 21664376 (Version 2)
Quarter: 2022Q4

REPORT INFORMATION
  Report Type: Report from Study
  Country: US (occurrence: US)
  Receive Date: 20221130
  Receipt Date: 20221209
  Transmission Date: 20230113
  Serious: Yes (Hospitalization, Other)
  Sender: FDA-Public Use
  Company Number: US-PFIZER INC-PV202200107343

PATIENT
  Age: 67 Year
  Sex: Female
  Weight: 44.5 kg

DRUGS (9)
  1. INVESTIGATIONAL PRODUCT [Suspect]
     Active Substance: INVESTIGATIONAL PRODUCT
     Indication: Neoplasm malignant
     Dosage: 91 MG, DAY 1 AND DAY 8 OF EACH 21 DAYS CYCLE (CYCLE 1-6)
     Route: 042
     Dates: start: 20221114, end: 20221114
  2. DOXORUBICIN HYDROCHLORIDE [Suspect]
     Active Substance: DOXORUBICIN HYDROCHLORIDE
     Indication: Neoplasm malignant
     Dosage: 104 MG, DAY 1 OF EACH 21 DAYS CYCLE FOR A MAXIMUM OF 6 CYCLES
     Route: 042
     Dates: start: 20221114, end: 20221114
  3. ULTRAM [Suspect]
     Active Substance: TRAMADOL HYDROCHLORIDE
     Indication: Neck pain
     Dosage: 50 MG, EVERY 6 HOURS AS NEEDED
     Route: 048
     Dates: start: 20210408
  4. ULTRAM [Suspect]
     Active Substance: TRAMADOL HYDROCHLORIDE
     Indication: Back pain
  5. ULTRAM [Suspect]
     Active Substance: TRAMADOL HYDROCHLORIDE
     Indication: Sciatica
  6. VALIUM [Suspect]
     Active Substance: DIAZEPAM
     Indication: Anxiety
     Dosage: 10 MG, AT BEDTIME AS NEEDED
     Route: 048
     Dates: start: 20130213
  7. ZANAFLEX [Concomitant]
     Active Substance: TIZANIDINE HYDROCHLORIDE
     Indication: Muscle spasms
     Dosage: 2 MG, EVERY 6 HOURS AS NEEDED
     Route: 048
     Dates: start: 20210314
  8. DECADRON [Concomitant]
     Active Substance: DEXAMETHASONE
     Indication: Nausea
     Dosage: 4 MG, TAKE ON TIME DAILY FOR 3 DAYS FOLLOWING DOXORUBICIN
     Route: 048
     Dates: start: 20221114, end: 20221117
  9. DECADRON [Concomitant]
     Active Substance: DEXAMETHASONE
     Indication: Vomiting

REACTIONS (1)
  - Syncope [Recovered/Resolved with Sequelae]

NARRATIVE: CASE EVENT DATE: 20221117
